FAERS Safety Report 19110621 (Version 1)
Quarter: 2021Q2

REPORT INFORMATION
  Report Type: Report from Study
  Country: US (occurrence: US)
  Receive Date: 20210408
  Receipt Date: 20210408
  Transmission Date: 20210717
  Serious: Yes (Other)
  Sender: FDA-Public Use
  Company Number: US-AMGEN-USACT2021050504

PATIENT
  Age: 7 Year
  Sex: Male
  Weight: 24.3 kg

DRUGS (3)
  1. METHOTREXATE. [Suspect]
     Active Substance: METHOTREXATE
     Indication: B PRECURSOR TYPE ACUTE LEUKAEMIA
     Dosage: UNK
     Route: 065
     Dates: start: 202008, end: 202010
  2. BLINATUMOMAB [Suspect]
     Active Substance: BLINATUMOMAB
     Indication: B PRECURSOR TYPE ACUTE LEUKAEMIA
     Dosage: UNK
     Route: 065
     Dates: start: 20201019, end: 20201020
  3. METHOTREXATE. [Suspect]
     Active Substance: METHOTREXATE
     Dosage: 12 MILLIGRAM
     Route: 037
     Dates: start: 20201019, end: 20201019

REACTIONS (2)
  - Irritability [Recovered/Resolved]
  - Agitation [Recovered/Resolved]

NARRATIVE: CASE EVENT DATE: 20201020
